FAERS Safety Report 4891293-5 (Version None)
Quarter: 2006Q1

REPORT INFORMATION
  Report Type: 
  Country: None (occurrence: None)
  Receive Date: 20060123
  Receipt Date: 20060111
  Transmission Date: 20060701
  Serious: Yes (Death)
  Sender: FDA-Public Use
  Company Number: 2006-DE-00139GD

PATIENT
  Age: 31 Year
  Sex: Female

DRUGS (4)
  1. CODEINE (CODEINE) [Suspect]
  2. CODEINE (CODEINE) [Suspect]
  3. BENZODIAZEPINES (BENZODIAZEPINES DERIVATIVES) [Suspect]
  4. DIHYDROCODEINE (DIHYDROCODEINE) [Suspect]

REACTIONS (2)
  - DRUG TOXICITY [None]
  - POLYSUBSTANCE ABUSE [None]
